FAERS Safety Report 9742885 (Version 2)
Quarter: 2013Q4

REPORT INFORMATION
  Report Type: Report from Study
  Country: US (occurrence: US)
  Receive Date: 20131210
  Receipt Date: 20131210
  Transmission Date: 20140711
  Serious: Yes (Other)
  Sender: FDA-Public Use
  Company Number: PHEH2013US018388

PATIENT
  Age: 53 Year
  Sex: Female

DRUGS (3)
  1. GLEEVEC [Suspect]
     Indication: CHRONIC MYELOID LEUKAEMIA (IN REMISSION)
     Dosage: 400 MG, QD
     Route: 048
     Dates: start: 20101010
  2. GLEEVEC [Suspect]
     Dosage: 400 MG, QD
     Route: 048
  3. PREDNISONE [Concomitant]
     Dosage: UNK UKN, UNK

REACTIONS (6)
  - Pituitary-dependent Cushing^s syndrome [Unknown]
  - White blood cell count increased [Unknown]
  - Lethargy [Unknown]
  - Malaise [Unknown]
  - Somnolence [Unknown]
  - Abdominal distension [Unknown]
